FAERS Safety Report 7183799-3 (Version None)
Quarter: 2010Q4

REPORT INFORMATION
  Report Type: 
  Country: None (occurrence: None)
  Receive Date: 20101220
  Receipt Date: 20101220
  Transmission Date: 20110411
  Serious: Yes (Life-Threatening)
  Sender: FDA-Public Use
  Company Number: None

PATIENT
  Age: 57 Year
  Sex: Male
  Weight: 83.9154 kg

DRUGS (2)
  1. LIPITOR [Suspect]
     Indication: BLOOD CHOLESTEROL INCREASED
     Dosage: 10 MG ONCE DAILY PO
     Route: 048
     Dates: start: 20080118, end: 20080331
  2. LISINOPRIL [Concomitant]

REACTIONS (1)
  - RHABDOMYOLYSIS [None]
